FAERS Safety Report 20661654 (Version 8)
Quarter: 2023Q2

REPORT INFORMATION
  Report Type: Spontaneous
  Country: US (occurrence: US)
  Receive Date: 20220401
  Receipt Date: 20230504
  Transmission Date: 20230721
  Serious: Yes (Other)
  Sender: FDA-Public Use
  Company Number: US-PFIZER INC-202200445427

PATIENT
  Age: 59 Year
  Sex: Female

DRUGS (2)
  1. IBRANCE [Suspect]
     Active Substance: PALBOCICLIB
     Indication: Breast cancer female
     Dosage: 125 MG
  2. IBRANCE [Suspect]
     Active Substance: PALBOCICLIB
     Indication: Tumour pain
     Dosage: 75 MG
     Dates: start: 20220318

REACTIONS (9)
  - Anaphylactoid reaction [Unknown]
  - Throat tightness [Unknown]
  - Pharyngeal swelling [Unknown]
  - Weight decreased [Unknown]
  - Hypersensitivity [Unknown]
  - Fatigue [Not Recovered/Not Resolved]
  - Swelling face [Unknown]
  - Alopecia [Unknown]
  - Decreased appetite [Unknown]
